FAERS Safety Report 6755356-1 (Version None)
Quarter: 2010Q2

REPORT INFORMATION
  Report Type: 
  Country: None (occurrence: None)
  Receive Date: 20100604
  Receipt Date: 20100526
  Transmission Date: 20101027
  Serious: Yes (Other)
  Sender: FDA-Public Use
  Company Number: NL-PFIZER INC-2010029490

PATIENT
  Age: 70 Year
  Sex: Male
  Weight: 95 kg

DRUGS (7)
  1. LIPITOR [Suspect]
     Indication: BLOOD CHOLESTEROL
     Dosage: 20 MG, 1X/DAY
     Dates: start: 20080101
  2. LYRICA [Suspect]
     Indication: HERPES ZOSTER
     Dosage: 150 MG, 2X/DAY
     Dates: start: 20091013, end: 20100122
  3. TOPAMAX [Suspect]
     Indication: HEADACHE
     Dosage: 25 MG, 2X/DAY
     Dates: start: 20100119
  4. PLAVIX [Concomitant]
     Indication: CARDIAC DISORDER
     Dosage: 75 MG, 1X/DAY
     Dates: start: 20080101
  5. OMEPRAZOLE [Concomitant]
     Indication: ABDOMINAL DISCOMFORT
     Dosage: 40 MG, 1X/DAY
     Dates: start: 20100211
  6. MONO-CEDOCARD [Concomitant]
     Indication: CARDIAC DISORDER
     Dosage: 50 MG, 1X/DAY
  7. BISOPROLOL [Concomitant]
     Dosage: 5 MG, 1X/DAY
     Dates: start: 20080101

REACTIONS (3)
  - ABDOMINAL DISCOMFORT [None]
  - DUODENITIS [None]
  - GASTRITIS [None]
